FAERS Safety Report 4295786-3 (Version None)
Quarter: 2004Q1

REPORT INFORMATION
  Report Type: 
  Country: None (occurrence: None)
  Receive Date: 20040216
  Receipt Date: 20031103
  Transmission Date: 20041129
  Serious: Yes (Disabling)
  Sender: FDA-Public Use
  Company Number: US-GLAXOSMITHKLINE-A0432617A

PATIENT
  Age: 36 Year
  Sex: Female

DRUGS (4)
  1. LAMICTAL [Suspect]
     Indication: BIPOLAR DISORDER
     Dosage: 300MG PER DAY
     Route: 048
     Dates: start: 20030919, end: 20031025
  2. SEROQUEL [Concomitant]
  3. PROZAC [Concomitant]
  4. TOPAMAX [Concomitant]

REACTIONS (2)
  - PRURITUS [None]
  - RASH [None]
